FAERS Safety Report 19906518 (Version 1)
Quarter: 2021Q4

REPORT INFORMATION
  Report Type: Spontaneous
  Country: US (occurrence: US)
  Receive Date: 20211001
  Receipt Date: 20211001
  Transmission Date: 20220303
  Serious: No
  Sender: FDA-Public Use
  Company Number: None

PATIENT
  Age: 54 Year
  Sex: Female

DRUGS (13)
  1. BENLYSTA [Suspect]
     Active Substance: BELIMUMAB
     Indication: Systemic lupus erythematosus
     Dosage: ?          OTHER FREQUENCY:EVERY 7 DAYS;
     Route: 048
     Dates: start: 20191221
  2. AMITIZA [Concomitant]
     Active Substance: LUBIPROSTONE
  3. AMITRIPTYLINE [Concomitant]
     Active Substance: AMITRIPTYLINE
  4. MOBIC [Concomitant]
     Active Substance: MELOXICAM
  5. MORPHINE SULFATE [Concomitant]
     Active Substance: MORPHINE SULFATE
  6. MUPIPOCIN [Concomitant]
  7. PANTOPRAZOLE [Concomitant]
     Active Substance: PANTOPRAZOLE
  8. PROMETHAZINE [Concomitant]
     Active Substance: PROMETHAZINE HYDROCHLORIDE
  9. SUCRALFATE [Concomitant]
     Active Substance: SUCRALFATE
  10. SYNTHROID [Concomitant]
     Active Substance: LEVOTHYROXINE SODIUM
  11. TIZANIDINE [Concomitant]
     Active Substance: TIZANIDINE
  12. TRIAMCINOLON [Concomitant]
  13. UREA [Concomitant]
     Active Substance: UREA

REACTIONS (2)
  - Dehydration [None]
  - Palpitations [None]

NARRATIVE: CASE EVENT DATE: 20210918
